FAERS Safety Report 16709865 (Version 2)
Quarter: 2019Q3

REPORT INFORMATION
  Report Type: Spontaneous
  Country: US (occurrence: US)
  Receive Date: 20190816
  Receipt Date: 20190924
  Transmission Date: 20191004
  Serious: No
  Sender: FDA-Public Use
  Company Number: US-PFIZER INC-2018181449

PATIENT
  Age: 65 Year

DRUGS (2)
  1. GABAPENTIN. [Concomitant]
     Active Substance: GABAPENTIN
     Dosage: 500 MG, DAILY
  2. CELEBREX [Suspect]
     Active Substance: CELECOXIB
     Indication: BACK PAIN
     Dosage: 20 MG, 1X/DAY

REACTIONS (4)
  - Product prescribing error [Unknown]
  - Gastrooesophageal reflux disease [Not Recovered/Not Resolved]
  - Intentional dose omission [Unknown]
  - Ulcer [Unknown]

NARRATIVE: CASE EVENT DATE: 201906
